FAERS Safety Report 13952949 (Version 2)
Quarter: 2017Q4

REPORT INFORMATION
  Report Type: Report from Study
  Country: US (occurrence: US)
  Receive Date: 20170911
  Receipt Date: 20171003
  Transmission Date: 20180320
  Serious: No
  Sender: FDA-Public Use
  Company Number: US-009507513-1709USA000178

PATIENT
  Sex: Female

DRUGS (5)
  1. BELSOMRA [Suspect]
     Active Substance: SUVOREXANT
     Indication: INSOMNIA
     Dosage: 10 MG, DAILY
     Route: 048
     Dates: end: 20170802
  2. BELSOMRA [Suspect]
     Active Substance: SUVOREXANT
     Dosage: 1.5 TABLET (15 MG), DAILY
     Route: 048
     Dates: start: 20170803, end: 20170809
  3. PROSOM [Concomitant]
     Active Substance: ESTAZOLAM
     Dosage: UNK
  4. QUESTRAN [Concomitant]
     Active Substance: CHOLESTYRAMINE
     Dosage: UNK
  5. BELSOMRA [Suspect]
     Active Substance: SUVOREXANT
     Dosage: 20 MG, DAILY
     Route: 048
     Dates: start: 20170810, end: 20170824

REACTIONS (1)
  - Drug ineffective [Unknown]

NARRATIVE: CASE EVENT DATE: 2017
